FAERS Safety Report 17632132 (Version 2)
Quarter: 2020Q2

REPORT INFORMATION
  Report Type: Spontaneous
  Country: US (occurrence: US)
  Receive Date: 20200406
  Receipt Date: 20200410
  Transmission Date: 20200713
  Serious: Yes (Hospitalization, Other)
  Sender: FDA-Public Use
  Company Number: US-PFIZER INC-2020138604

PATIENT
  Age: 28 Year
  Sex: Female

DRUGS (3)
  1. LEVOFLOXACIN. [Suspect]
     Active Substance: LEVOFLOXACIN
     Indication: PYELONEPHRITIS
     Dosage: UNK
  2. LOPERAMIDE [Suspect]
     Active Substance: LOPERAMIDE
     Dosage: 400 MG, UNK (PREADMISSION)
  3. LOPERAMIDE [Suspect]
     Active Substance: LOPERAMIDE
     Dosage: 400 MG, UNK (ON DAY 3)

REACTIONS (3)
  - Bradycardia [Unknown]
  - Torsade de pointes [Unknown]
  - Syncope [Unknown]
